FAERS Safety Report 5958471-5 (Version None)
Quarter: 2008Q4

REPORT INFORMATION
  Report Type: 
  Country: None (occurrence: None)
  Receive Date: 20081119
  Receipt Date: 20081113
  Transmission Date: 20090506
  Serious: Yes (Death)
  Sender: FDA-Public Use
  Company Number: IT-ROCHE-594550

PATIENT
  Sex: Female
  Weight: 54 kg

DRUGS (3)
  1. CAPECITABINE [Suspect]
     Route: 065
  2. BEVACIZUMAB [Suspect]
     Dosage: DATE OF LAST DOSE PRIOR TO SAE: 27 JUNE 2008
     Route: 042
     Dates: start: 20071221, end: 20080627
  3. PACLITAXEL [Concomitant]
     Route: 042
     Dates: start: 20071221, end: 20080627

REACTIONS (2)
  - DEHYDRATION [None]
  - HYPERNATRAEMIA [None]
